FAERS Safety Report 26175378 (Version 2)
Quarter: 2025Q4

REPORT INFORMATION
  Report Type: Report from Study
  Country: US (occurrence: US)
  Receive Date: 20251218
  Receipt Date: 20251230
  Transmission Date: 20260118
  Serious: No
  Sender: MALLINCKRODT
  Company Number: US-MALLINCKRODT-MNK202508104

PATIENT
  Age: 5 Month
  Sex: Male
  Weight: 7 kg

DRUGS (4)
  1. CORTICOTROPIN [Suspect]
     Active Substance: CORTICOTROPIN
     Indication: Infantile spasms
     Route: 030
     Dates: start: 20251212
  2. PHENOBARBITAL [Concomitant]
     Active Substance: PHENOBARBITAL
     Dosage: UNKNOWN
  3. PHENOBARBITAL [Concomitant]
     Active Substance: PHENOBARBITAL
     Dosage: UNKNOWN (DECREASED)
  4. CLOBAZAM [Concomitant]
     Active Substance: CLOBAZAM
     Dosage: UNKNOWN

REACTIONS (1)
  - Increased appetite [Unknown]

NARRATIVE: CASE EVENT DATE: 20251201
